FAERS Safety Report 8387841-3 (Version None)
Quarter: 2012Q2

REPORT INFORMATION
  Report Type: 
  Country: None (occurrence: None)
  Receive Date: 20120525
  Receipt Date: 20120410
  Transmission Date: 20120825
  Serious: No
  Sender: FDA-Public Use
  Company Number: US-BRISTOL-MYERS SQUIBB COMPANY-16429847

PATIENT
  Age: 63 Year

DRUGS (8)
  1. KOMBIGLYZE XR [Suspect]
     Dosage: 1DF:2.5/1000,KOMBIGLYZE XR 2.5/1000
     Dates: start: 20110518
  2. MULTI-VITAMIN [Concomitant]
  3. FOLIC ACID [Concomitant]
  4. CHROMIUM CHLORIDE [Concomitant]
  5. VITAMIN B6 [Concomitant]
  6. VITAMIN B-12 [Concomitant]
  7. LISINOPRIL [Concomitant]
  8. CALCIUM CARBONATE [Concomitant]

REACTIONS (2)
  - DIARRHOEA [None]
  - URTICARIA [None]
